FAERS Safety Report 23289235 (Version 1)
Quarter: 2023Q4

REPORT INFORMATION
  Report Type: Spontaneous
  Country: US (occurrence: US)
  Receive Date: 20231212
  Receipt Date: 20231212
  Transmission Date: 20240109
  Serious: Yes (Other)
  Sender: FDA-Public Use
  Company Number: US-BAYER-2023A174962

PATIENT
  Age: 81 Year
  Sex: Male

DRUGS (2)
  1. NUBEQA [Suspect]
     Active Substance: DAROLUTAMIDE
     Dosage: 300 MG, BID
     Route: 048
     Dates: start: 202311
  2. NUBEQA [Suspect]
     Active Substance: DAROLUTAMIDE
     Dosage: DOSE REDUCED

REACTIONS (1)
  - Neutropenia [None]

NARRATIVE: CASE EVENT DATE: 20231101
